FAERS Safety Report 18813727 (Version 7)
Quarter: 2021Q2

REPORT INFORMATION
  Report Type: Report from Study
  Country: None (occurrence: US)
  Receive Date: 20210201
  Receipt Date: 20210608
  Transmission Date: 20210717
  Serious: Yes (Hospitalization, Other)
  Sender: FDA-Public Use
  Company Number: US-ABBVIE-20K-163-3667002-00

PATIENT
  Sex: Female
  Weight: 87.62 kg

DRUGS (31)
  1. GLUCOPHAGE [Concomitant]
     Active Substance: METFORMIN HYDROCHLORIDE
     Indication: GLUCOSE TOLERANCE IMPAIRED
     Route: 048
     Dates: start: 20180419
  2. NORCO [Concomitant]
     Active Substance: ACETAMINOPHEN\HYDROCODONE BITARTRATE
     Indication: PRODUCT USED FOR UNKNOWN INDICATION
     Dosage: 10 TO 325MG PER TABLET.?ONE TABLET BY MOUTH FOUR TIMES A DAY
     Route: 048
     Dates: start: 20180419
  3. ZOFRAN [Concomitant]
     Active Substance: ONDANSETRON HYDROCHLORIDE
     Indication: VOMITING
  4. ZINC GLUCONATE [Concomitant]
     Active Substance: ZINC GLUCONATE
     Indication: PRODUCT USED FOR UNKNOWN INDICATION
     Route: 048
     Dates: start: 20180419
  5. MECLIZINE [Concomitant]
     Active Substance: MECLIZINE HYDROCHLORIDE
     Indication: DIZZINESS
  6. VENCLEXTA [Suspect]
     Active Substance: VENETOCLAX
     Indication: PLASMA CELL MYELOMA
     Dosage: TAKE EIGHT PILLS WITH FOOD AND WATER
     Route: 048
  7. VITAMIN D3 [Concomitant]
     Active Substance: CHOLECALCIFEROL
     Indication: PRODUCT USED FOR UNKNOWN INDICATION
     Dosage: AT BEDTIME
     Route: 048
     Dates: start: 20150223
  8. CYMBALTA [Concomitant]
     Active Substance: DULOXETINE HYDROCHLORIDE
     Indication: INTERVERTEBRAL DISC DEGENERATION
     Dosage: AT BEDTIME
     Route: 048
     Dates: start: 20150223
  9. LOFIBRA [Concomitant]
     Active Substance: FENOFIBRATE
     Indication: HYPERTENSION
     Route: 048
  10. ANTIVERT [Concomitant]
     Active Substance: MECLIZINE HYDROCHLORIDE
     Indication: DIZZINESS
     Dosage: AS NEEDED
     Route: 048
  11. ZANAFLEX [Concomitant]
     Active Substance: TIZANIDINE HYDROCHLORIDE
     Indication: LUMBAR SPINAL STENOSIS
  12. SYNTHROID [Concomitant]
     Active Substance: LEVOTHYROXINE SODIUM
     Indication: HYPOTHYROIDISM
     Dosage: EVERY MORNING BEFORE BREAKFAST
     Route: 048
  13. DEXAMETHASONE. [Concomitant]
     Active Substance: DEXAMETHASONE
     Indication: PLASMA CELL MYELOMA
     Dosage: ON EVERY MONDAY
  14. VALTREX [Concomitant]
     Active Substance: VALACYCLOVIR HYDROCHLORIDE
     Indication: ANTIVIRAL PROPHYLAXIS
     Dosage: TWO TABLETS BY MOUTH DAILY 16M IN PM/16M IN PM
     Route: 048
     Dates: start: 20180419
  15. XANAX [Concomitant]
     Active Substance: ALPRAZOLAM
     Indication: INTERVERTEBRAL DISC DEGENERATION
  16. NEURONTIN [Concomitant]
     Active Substance: GABAPENTIN
     Indication: LUMBAR SPINAL STENOSIS
  17. NEURONTIN [Concomitant]
     Active Substance: GABAPENTIN
     Indication: INTERVERTEBRAL DISC DEGENERATION
     Route: 048
     Dates: start: 20150223
  18. CRESTOR [Concomitant]
     Active Substance: ROSUVASTATIN CALCIUM
     Indication: HYPERTENSION
     Route: 048
  19. VENCLEXTA [Suspect]
     Active Substance: VENETOCLAX
     Dosage: TAKE EIGHT TABLET(S) BY MOUTH EVERY DAY WITH FOOD AND WATER
     Route: 048
     Dates: start: 20210122
  20. ASPIRIN. [Concomitant]
     Active Substance: ASPIRIN
     Indication: CARDIAC DISORDER
     Dosage: AT BEDTIME
     Route: 048
     Dates: start: 20180419
  21. COLAZAL [Concomitant]
     Active Substance: BALSALAZIDE DISODIUM
     Indication: OESOPHAGEAL DISORDER
     Dosage: AT BEDTIME
     Route: 048
  22. VITAMIN B12 [Concomitant]
     Active Substance: CYANOCOBALAMIN
     Indication: PRODUCT USED FOR UNKNOWN INDICATION
     Dosage: AT BEDTIME
     Route: 048
     Dates: start: 20180419
  23. ACIPHEX [Concomitant]
     Active Substance: RABEPRAZOLE SODIUM
     Indication: OESOPHAGEAL DISORDER
     Dosage: EVERY MORNING BEFORE BREAKFAST
     Route: 048
     Dates: start: 20150223
  24. ZANAFLEX [Concomitant]
     Active Substance: TIZANIDINE HYDROCHLORIDE
     Indication: INTERVERTEBRAL DISC DEGENERATION
     Dosage: AT BEDTIME
     Route: 048
     Dates: start: 20180419
  25. VELCADE [Concomitant]
     Active Substance: BORTEZOMIB
     Indication: PLASMA CELL MYELOMA
     Dosage: ON EVERY MONDAY
  26. MAGNESIUM [Concomitant]
     Active Substance: MAGNESIUM
     Indication: MUSCLE SPASMS
  27. VENCLEXTA [Suspect]
     Active Substance: VENETOCLAX
     Route: 048
  28. ZOFRAN [Concomitant]
     Active Substance: ONDANSETRON HYDROCHLORIDE
     Indication: NAUSEA
     Dosage: AS NEEDED
     Route: 048
  29. XANAX [Concomitant]
     Active Substance: ALPRAZOLAM
     Indication: CANCER PAIN
     Dosage: AT BEDTIME
     Route: 048
     Dates: start: 20150223
  30. XANAX [Concomitant]
     Active Substance: ALPRAZOLAM
     Indication: SPINAL STENOSIS
  31. CYMBALTA [Concomitant]
     Active Substance: DULOXETINE HYDROCHLORIDE
     Indication: LUMBAR SPINAL STENOSIS

REACTIONS (5)
  - Amyloidosis [Unknown]
  - Off label use [Unknown]
  - Pulmonary mass [Recovering/Resolving]
  - Lymphadenopathy [Unknown]
  - Pneumothorax [Unknown]

NARRATIVE: CASE EVENT DATE: 2021
